FAERS Safety Report 12700935 (Version 3)
Quarter: 2019Q4

REPORT INFORMATION
  Report Type: Spontaneous
  Country: US (occurrence: US)
  Receive Date: 20160830
  Receipt Date: 20191021
  Transmission Date: 20200122
  Serious: Yes (Other)
  Sender: FDA-Public Use
  Company Number: US-TEVA-688494ACC

PATIENT
  Age: 21 Year
  Sex: Female
  Weight: 69.01 kg

DRUGS (1)
  1. PLAN B ONE-STEP [Suspect]
     Active Substance: LEVONORGESTREL
     Indication: POST COITAL CONTRACEPTION
     Dates: start: 20160122, end: 20160122

REACTIONS (4)
  - Maternal exposure during pregnancy [Unknown]
  - Premature labour [Unknown]
  - Pregnancy after post coital contraception [Unknown]
  - Normal newborn [Unknown]

NARRATIVE: CASE EVENT DATE: 20160930
